FAERS Safety Report 14581537 (Version 1)
Quarter: 2018Q1

REPORT INFORMATION
  Report Type: Spontaneous
  Country: GB (occurrence: GB)
  Receive Date: 20180228
  Receipt Date: 20180228
  Transmission Date: 20180509
  Serious: Yes (Other)
  Sender: FDA-Public Use
  Company Number: GB-LPDUSPRD-20180238

PATIENT
  Age: 83 Year
  Sex: Male

DRUGS (1)
  1. FERINJECT [Suspect]
     Active Substance: FERRIC CARBOXYMALTOSE
     Dosage: 11 ML
     Route: 041

REACTIONS (3)
  - Oxygen saturation decreased [Unknown]
  - Feeling hot [Unknown]
  - Dyspnoea [Unknown]
